FAERS Safety Report 9163820 (Version 1)
Quarter: 2013Q1

REPORT INFORMATION
  Report Type: Spontaneous
  Country: US (occurrence: US)
  Receive Date: 20130314
  Receipt Date: 20130314
  Transmission Date: 20140127
  Serious: No
  Sender: FDA-Public Use
  Company Number: US-TEVA-392123USA

PATIENT
  Sex: 0

DRUGS (4)
  1. COPAXONE [Suspect]
     Indication: MULTIPLE SCLEROSIS
     Dates: start: 201302
  2. TOPAMAX [Concomitant]
  3. IMITREX [Concomitant]
  4. PERCOCET [Concomitant]

REACTIONS (3)
  - Migraine [Unknown]
  - Vomiting [Unknown]
  - Visual impairment [Unknown]
